FAERS Safety Report 5960380-2 (Version None)
Quarter: 2008Q4

REPORT INFORMATION
  Report Type: 
  Country: None (occurrence: None)
  Receive Date: 20081114
  Receipt Date: 20080710
  Transmission Date: 20090506
  Serious: Yes (Hospitalization)
  Sender: FDA-Public Use
  Company Number: 2008S1000239

PATIENT
  Age: 60 Year
  Sex: Male
  Weight: 77 kg

DRUGS (10)
  1. CUBICIN [Suspect]
     Indication: STAPHYLOCOCCAL OSTEOMYELITIS
     Dosage: 5 MG/KG;Q24H;IV
     Route: 042
     Dates: start: 20080513, end: 20080625
  2. LISINOPRIL [Concomitant]
  3. LYRICA [Concomitant]
  4. HUMALOG [Concomitant]
  5. LANTUS [Concomitant]
  6. SERTRALINE [Concomitant]
  7. PANTOPRAZOLE SODIUM [Concomitant]
  8. METHADONE HCL [Concomitant]
  9. METOCLOPRAMIDE [Concomitant]
  10. AMITRIPTYLINE HCL [Concomitant]

REACTIONS (1)
  - PULMONARY EOSINOPHILIA [None]
